FAERS Safety Report 6452716-3 (Version None)
Quarter: 2009Q4

REPORT INFORMATION
  Report Type: 
  Country: None (occurrence: None)
  Receive Date: 20091124
  Receipt Date: 20091118
  Transmission Date: 20100525
  Serious: Yes (Other)
  Sender: FDA-Public Use
  Company Number: CZ-JNJFOC-20091104441

PATIENT
  Sex: Male

DRUGS (6)
  1. REMICADE [Suspect]
     Dosage: 3RD INFUSION
     Route: 042
     Dates: start: 20090930, end: 20091111
  2. REMICADE [Suspect]
     Indication: COLITIS ULCERATIVE
     Route: 042
     Dates: start: 20090930, end: 20091111
  3. MEDROL [Concomitant]
  4. SULFASALAZINE [Concomitant]
     Dosage: 2 TABLESPOONS
  5. MILURIT [Concomitant]
  6. LOKREN [Concomitant]
     Dosage: 1/2 TABLESPOON

REACTIONS (6)
  - ANGINA PECTORIS [None]
  - DEFAECATION URGENCY [None]
  - ERYTHEMA [None]
  - HYPOTENSION [None]
  - INFUSION RELATED REACTION [None]
  - NAUSEA [None]
